FAERS Safety Report 4409362-2 (Version None)
Quarter: 2004Q3

REPORT INFORMATION
  Report Type: 
  Country: None (occurrence: None)
  Receive Date: 20040723
  Receipt Date: 20040707
  Transmission Date: 20050211
  Serious: Yes (Hospitalization)
  Sender: FDA-Public Use
  Company Number: ST-2004-007925

PATIENT
  Age: 29 Year
  Sex: Male

DRUGS (3)
  1. OLMETEC [Suspect]
     Indication: HYPERTENSION
     Dosage: 20 MG QD PO
     Route: 048
     Dates: start: 20040526, end: 20040703
  2. MERISLOW [Concomitant]
  3. NAUZELIN [Concomitant]

REACTIONS (2)
  - CHILLS [None]
  - RHABDOMYOLYSIS [None]
